FAERS Safety Report 15802930 (Version 1)
Quarter: 2019Q1

REPORT INFORMATION
  Report Type: Spontaneous
  Country: IN (occurrence: IN)
  Receive Date: 20190109
  Receipt Date: 20190109
  Transmission Date: 20190417
  Serious: Yes (Other)
  Sender: FDA-Public Use
  Company Number: IN-009507513-1901IND001729

PATIENT
  Age: 23 Year
  Sex: Female
  Weight: 49 kg

DRUGS (16)
  1. BEDAQUILINE [Suspect]
     Active Substance: BEDAQUILINE
     Indication: PULMONARY TUBERCULOSIS
     Dosage: 200 MILLIGRAM, TIW
     Route: 048
     Dates: start: 20180804
  2. AMOXCLAV [Suspect]
     Active Substance: AMOXICILLIN\CLAVULANIC ACID
     Indication: BONE TUBERCULOSIS
  3. CLOFAZIMINE [Suspect]
     Active Substance: CLOFAZIMINE
     Indication: PULMONARY TUBERCULOSIS
     Dosage: 200 MILLIGRAM, QD
     Route: 065
     Dates: start: 20180730
  4. DELAMANID [Suspect]
     Active Substance: DELAMANID
     Indication: PULMONARY TUBERCULOSIS
     Dosage: 200 MILLIGRAM, QD
     Route: 048
     Dates: start: 20180730
  5. PYRIDOXINE [Concomitant]
     Active Substance: PYRIDOXINE
     Indication: PROPHYLAXIS
     Dosage: UNK
     Dates: start: 20180730
  6. DELAMANID [Suspect]
     Active Substance: DELAMANID
     Indication: BONE TUBERCULOSIS
  7. LINEZOLID. [Suspect]
     Active Substance: LINEZOLID
     Indication: BONE TUBERCULOSIS
  8. CLOFAZIMINE [Suspect]
     Active Substance: CLOFAZIMINE
     Indication: BONE TUBERCULOSIS
  9. IMIPENEM AND CILASTATIN [Suspect]
     Active Substance: CILASTATIN SODIUM\IMIPENEM
     Indication: BONE TUBERCULOSIS
  10. PYRAZINAMIDE. [Suspect]
     Active Substance: PYRAZINAMIDE
     Indication: PULMONARY TUBERCULOSIS
     Dosage: 1500 MILLIGRAM, QD
     Route: 065
     Dates: start: 20180730
  11. PYRAZINAMIDE. [Suspect]
     Active Substance: PYRAZINAMIDE
     Indication: BONE TUBERCULOSIS
  12. AMOXCLAV [Suspect]
     Active Substance: AMOXICILLIN\CLAVULANIC ACID
     Indication: PULMONARY TUBERCULOSIS
     Dosage: 1250 MILLIGRAM, QD
     Route: 065
     Dates: start: 20180730
  13. LINEZOLID. [Suspect]
     Active Substance: LINEZOLID
     Indication: PULMONARY TUBERCULOSIS
     Dosage: 600 MILLIGRAM, QD
     Route: 065
     Dates: start: 20180730
  14. OMEPRAZOLE. [Concomitant]
     Active Substance: OMEPRAZOLE
     Dosage: UNK
     Dates: start: 20180730
  15. IMIPENEM AND CILASTATIN [Suspect]
     Active Substance: CILASTATIN SODIUM\IMIPENEM
     Indication: PULMONARY TUBERCULOSIS
     Dosage: 2 GRAM, QD
     Dates: start: 20180730, end: 20180913
  16. BEDAQUILINE [Suspect]
     Active Substance: BEDAQUILINE
     Indication: BONE TUBERCULOSIS

REACTIONS (5)
  - Decreased appetite [Unknown]
  - Nausea [Not Recovered/Not Resolved]
  - Weight decreased [Unknown]
  - Product use in unapproved indication [Unknown]
  - Vomiting [Not Recovered/Not Resolved]

NARRATIVE: CASE EVENT DATE: 2018
